FAERS Safety Report 18119897 (Version 1)
Quarter: 2020Q3

REPORT INFORMATION
  Report Type: Spontaneous
  Country: US (occurrence: US)
  Receive Date: 20200806
  Receipt Date: 20200806
  Transmission Date: 20201103
  Serious: Yes (Hospitalization, Other)
  Sender: FDA-Public Use
  Company Number: US-AUROBINDO-AUR-APL-2020-037460

PATIENT
  Age: 75 Year
  Sex: Male

DRUGS (9)
  1. MEFENAMIC ACID. [Interacting]
     Active Substance: MEFENAMIC ACID
     Indication: PAIN
     Dosage: UNK, 3 TIMES A DAY
     Route: 061
  2. IMIPRAMINE [Interacting]
     Active Substance: IMIPRAMINE
     Indication: PAIN
     Dosage: UNK
     Route: 065
  3. LIDOCAINE. [Interacting]
     Active Substance: LIDOCAINE
     Indication: PAIN
     Dosage: UNK
     Route: 065
  4. ACETAMINOPHEN AND CODEINE [Suspect]
     Active Substance: ACETAMINOPHEN\CODEINE PHOSPHATE
     Indication: PAIN
     Dosage: UNK UNK, EVERY FOUR HOUR, (300/30 MILLIGRAM)
     Route: 065
  5. PRAVASTATIN SODIUM. [Interacting]
     Active Substance: PRAVASTATIN SODIUM
     Indication: PRODUCT USED FOR UNKNOWN INDICATION
     Dosage: 40 MILLIGRAM, NIGHTLY
     Route: 065
  6. KETAMINE [Interacting]
     Active Substance: KETAMINE
     Indication: PAIN
     Dosage: UNK, 3 TIMES A DAY
     Route: 061
  7. TELMISARTAN. [Interacting]
     Active Substance: TELMISARTAN
     Indication: PRODUCT USED FOR UNKNOWN INDICATION
     Dosage: 40 MILLIGRAM, DAILY
     Route: 065
  8. CLONIDINE. [Interacting]
     Active Substance: CLONIDINE
     Indication: PAIN
     Dosage: UNK UNK, 3 TIMES A DAY
     Route: 065
  9. GABAPENTIN. [Interacting]
     Active Substance: GABAPENTIN
     Indication: PAIN
     Dosage: UNK
     Route: 065

REACTIONS (5)
  - Encephalopathy [Recovered/Resolved]
  - Mood altered [Recovered/Resolved]
  - Drug interaction [Unknown]
  - Toxicity to various agents [Unknown]
  - Delirium [Recovered/Resolved]
